FAERS Safety Report 15995331 (Version 6)
Quarter: 2022Q3

REPORT INFORMATION
  Report Type: Report from Study
  Country: JP (occurrence: JP)
  Receive Date: 20190222
  Receipt Date: 20220713
  Transmission Date: 20221027
  Serious: Yes (Life-Threatening, Hospitalization)
  Sender: FDA-Public Use
  Company Number: JP-GSKJP-JP2019JPN028833AA

PATIENT

DRUGS (17)
  1. BELIMUMAB [Suspect]
     Active Substance: BELIMUMAB
     Indication: Systemic lupus erythematosus
     Dosage: 200 MG, 1D
     Route: 058
     Dates: start: 20190205, end: 20190205
  2. WARFARIN POTASSIUM [Suspect]
     Active Substance: WARFARIN POTASSIUM
     Indication: Aortic valve replacement
     Dosage: 2 MG, 1D
     Route: 048
     Dates: start: 20141030, end: 20190206
  3. WARFARIN POTASSIUM [Suspect]
     Active Substance: WARFARIN POTASSIUM
     Dosage: UNK UNK, 1D
     Route: 048
     Dates: start: 20190214
  4. RABEPRAZOLE SODIUM [Concomitant]
     Active Substance: RABEPRAZOLE SODIUM
     Indication: Prophylaxis against gastrointestinal ulcer
     Dosage: 10 MG, 1D
  5. ALOSENN [Concomitant]
     Indication: Constipation
     Dosage: 6 G, 1D
  6. DIMETHICONE [Concomitant]
     Active Substance: DIMETHICONE
     Dosage: 120 MG, 1D
  7. NEORAL [Concomitant]
     Active Substance: CYCLOSPORINE
     Indication: Systemic lupus erythematosus
     Dosage: 100 MG, 1D
  8. PREDNISOLONE [Concomitant]
     Active Substance: PREDNISOLONE
     Indication: Systemic lupus erythematosus
     Dosage: 5 MG, 1D
     Dates: start: 20180424
  9. CYCLOSPORINE [Concomitant]
     Active Substance: CYCLOSPORINE
     Indication: Systemic lupus erythematosus
     Dosage: UNK
  10. TEPRENONE [Concomitant]
     Active Substance: TEPRENONE
     Indication: Prophylaxis against gastrointestinal ulcer
     Dosage: 3 DF, 1D
  11. FOSRENOL [Concomitant]
     Active Substance: LANTHANUM CARBONATE
     Dosage: 1500 MG, 1D
  12. FERRIC HYDROXIDE [Concomitant]
     Active Substance: FERRIC HYDROXIDE
     Dosage: 2250 MG, 1D
  13. HERBALS [Concomitant]
     Active Substance: HERBALS
     Dosage: 3 DF, 1D
  14. PIARLE SYRUP 65% [Concomitant]
     Dosage: 90 ML, 1D
  15. AMEZINIUM METILSULFATE [Concomitant]
     Active Substance: AMEZINIUM METILSULFATE
     Dosage: 30 MG, UNK(ONLY AT TIME OF DIALYSIS)
  16. RENAGEL [Concomitant]
     Active Substance: SEVELAMER HYDROCHLORIDE
     Dosage: UNK
  17. ONEALFA [Concomitant]
     Active Substance: ALFACALCIDOL
     Dosage: UNK

REACTIONS (1)
  - Haematoma muscle [Recovering/Resolving]

NARRATIVE: CASE EVENT DATE: 20190206
